FAERS Safety Report 21585042 (Version 5)
Quarter: 2023Q2

REPORT INFORMATION
  Report Type: Report from Study
  Country: IL (occurrence: IL)
  Receive Date: 20221111
  Receipt Date: 20230420
  Transmission Date: 20230721
  Serious: Yes (Death, Hospitalization, Other)
  Sender: FDA-Public Use
  Company Number: IL-ABBVIE-22K-082-4231690-00

PATIENT
  Age: 70 Year
  Sex: Female

DRUGS (9)
  1. VENETOCLAX [Suspect]
     Active Substance: VENETOCLAX
     Indication: Acute myeloid leukaemia
     Dosage: 200 MILLIGRAM, DOSE MODIFICATION DUE TO ADVERSE EVENT?DOSE DECREASED
     Route: 048
     Dates: start: 20211224, end: 20220105
  2. VENETOCLAX [Suspect]
     Active Substance: VENETOCLAX
     Indication: Acute myeloid leukaemia
     Dosage: 100 MILLIGRAM, DURATION TEXT: RAMP UP
     Route: 048
     Dates: start: 20211014, end: 20211014
  3. VENETOCLAX [Suspect]
     Active Substance: VENETOCLAX
     Indication: Acute myeloid leukaemia
     Dosage: 200 MILLIGRAM, DURATION TEXT: RAMP UP?DOSE INCREASED
     Route: 048
     Dates: start: 20211015, end: 20211016
  4. VENETOCLAX [Suspect]
     Active Substance: VENETOCLAX
     Indication: Acute myeloid leukaemia
     Dosage: 300 MILLIGRAM, DOSE MODIFICATION DUE TO ADVERSE EVENT?DOSE INCREASED
     Route: 048
     Dates: start: 20220106, end: 20220122
  5. VENETOCLAX [Suspect]
     Active Substance: VENETOCLAX
     Indication: Acute myeloid leukaemia
     Dosage: DURATION TEXT: INTERRUPTION ADVERSE EVENT?DOSE INCREASED
     Route: 048
     Dates: start: 20211017, end: 20211120
  6. VENETOCLAX [Suspect]
     Active Substance: VENETOCLAX
     Indication: Acute myeloid leukaemia
     Route: 048
     Dates: start: 20220123, end: 20220204
  7. AZACITIDINE [Suspect]
     Active Substance: AZACITIDINE
     Indication: Acute myeloid leukaemia
     Dosage: FIRST ADMIN DATE WAS 13 OCT 2021?CYCLE 01
     Route: 058
     Dates: end: 20211020
  8. AZACITIDINE [Suspect]
     Active Substance: AZACITIDINE
     Indication: Acute myeloid leukaemia
     Dosage: CYCLE 03
     Route: 058
     Dates: start: 20220123, end: 20220127
  9. AZACITIDINE [Suspect]
     Active Substance: AZACITIDINE
     Indication: Acute myeloid leukaemia
     Dosage: CYCLE 02
     Route: 058
     Dates: start: 20211107, end: 20211111

REACTIONS (4)
  - Asthenia [Fatal]
  - Pyrexia [Recovered/Resolved]
  - Disease progression [Unknown]
  - Disease recurrence [Fatal]

NARRATIVE: CASE EVENT DATE: 20211120
